FAERS Safety Report 14252630 (Version 1)
Quarter: 2017Q4

REPORT INFORMATION
  Report Type: Spontaneous
  Country: CN (occurrence: CN)
  Receive Date: 20171205
  Receipt Date: 20171205
  Transmission Date: 20180321
  Serious: Yes (Other)
  Sender: FDA-Public Use
  Company Number: CN-CIPLA LTD.-2017CN21681

PATIENT

DRUGS (3)
  1. EPIRUBICIN [Suspect]
     Active Substance: EPIRUBICIN
     Indication: SOFT TISSUE SARCOMA
     Dosage: UNK, 4 CYCLES
     Route: 065
     Dates: start: 201507
  2. APATINIB [Suspect]
     Active Substance: APATINIB
     Indication: LIPOSARCOMA
     Dosage: 500 MG, PER DAY
     Route: 065
  3. IFOSFAMIDE. [Suspect]
     Active Substance: IFOSFAMIDE
     Indication: SOFT TISSUE SARCOMA
     Dosage: UNK, 4 CYCLES
     Route: 065
     Dates: start: 201507

REACTIONS (4)
  - Bone marrow failure [Unknown]
  - Liposarcoma recurrent [Unknown]
  - Disease progression [Unknown]
  - Mucosal ulceration [Unknown]

NARRATIVE: CASE EVENT DATE: 201607
